FAERS Safety Report 10019553 (Version 1)
Quarter: 2014Q1

REPORT INFORMATION
  Report Type: Spontaneous
  Country: GB (occurrence: GB)
  Receive Date: 20140318
  Receipt Date: 20140318
  Transmission Date: 20141002
  Serious: Yes (Hospitalization, Disabling)
  Sender: FDA-Public Use
  Company Number: GB-WATSON-2014-04840

PATIENT
  Age: 72 Year
  Sex: Female
  Weight: 169 kg

DRUGS (5)
  1. PREDNISOLONE (UNKNOWN) [Suspect]
     Indication: TEMPORAL ARTERITIS
     Dosage: 40 MG, UNKNOWN; REDUCED TO 17MG.
     Route: 065
     Dates: start: 201309, end: 20140101
  2. PREDNISOLONE (UNKNOWN) [Suspect]
     Dosage: 17 MG, UNKNOWN
     Route: 065
     Dates: start: 20140102
  3. CO-AMILOFRUSE [Concomitant]
     Indication: FLUID RETENTION
     Dosage: UNK
     Route: 065
  4. THYROXINE [Concomitant]
     Indication: THYROID DISORDER
     Dosage: 150 ?G; 20 YEARS
     Route: 065
  5. OMEPRAZOLE [Concomitant]
     Indication: HIATUS HERNIA
     Dosage: UNK; 10 YEARS
     Route: 065

REACTIONS (3)
  - Convulsion [Recovering/Resolving]
  - Tremor [Not Recovered/Not Resolved]
  - Muscle spasms [Not Recovered/Not Resolved]
